FAERS Safety Report 8411713-9 (Version None)
Quarter: 2012Q2

REPORT INFORMATION
  Report Type: 
  Country: None (occurrence: None)
  Receive Date: 20120531
  Receipt Date: 20120531
  Transmission Date: 20120825
  Serious: Yes (Hospitalization, Disabling, Other)
  Sender: FDA-Public Use
  Company Number: None

PATIENT
  Sex: Male
  Weight: 86.1834 kg

DRUGS (1)
  1. LYRICA [Suspect]
     Indication: EPILEPSY
     Dosage: 200 MG AM/PM
     Dates: start: 20110105, end: 20110801

REACTIONS (11)
  - TREMOR [None]
  - CONVERSION DISORDER [None]
  - WITHDRAWAL SYNDROME [None]
  - WEIGHT INCREASED [None]
  - DEPRESSION [None]
  - SPEECH DISORDER [None]
  - AGGRESSION [None]
  - PAIN [None]
  - ANXIETY [None]
  - HOT FLUSH [None]
  - HEADACHE [None]
